FAERS Safety Report 6524440-X (Version None)
Quarter: 2010Q1

REPORT INFORMATION
  Report Type: 
  Country: None (occurrence: None)
  Receive Date: 20100104
  Receipt Date: 20091222
  Transmission Date: 20100710
  Serious: Yes (Other)
  Sender: FDA-Public Use
  Company Number: IR-RANBAXY-2009RR-29659

PATIENT
  Age: 22 Year
  Sex: Male

DRUGS (4)
  1. FLUOXETINE [Suspect]
     Indication: DEPRESSION
     Dosage: 20 MG, UNK
  2. FLUOXETINE [Suspect]
     Indication: ASTHENIA
  3. RISPERIDONE [Suspect]
     Indication: SCHIZOPHRENIA
     Dosage: 4 MG, UNK
  4. NORTRIPTYLINE [Concomitant]
     Indication: DEPRESSION

REACTIONS (2)
  - DRUG INTERACTION [None]
  - EPISTAXIS [None]
